FAERS Safety Report 8147556-3 (Version None)
Quarter: 2012Q1

REPORT INFORMATION
  Report Type: 
  Country: None (occurrence: None)
  Receive Date: 20120218
  Receipt Date: 20120209
  Transmission Date: 20120608
  Serious: Yes (Other)
  Sender: FDA-Public Use
  Company Number: US-ASTRAZENECA-2011SE74411

PATIENT
  Sex: Female

DRUGS (2)
  1. CARAFATE [Concomitant]
  2. NEXIUM [Suspect]
     Indication: DUODENAL ULCER
     Route: 048

REACTIONS (2)
  - GASTROINTESTINAL DISORDER [None]
  - ULCER HAEMORRHAGE [None]
